FAERS Safety Report 7346481-5 (Version None)
Quarter: 2011Q1

REPORT INFORMATION
  Report Type: 
  Country: None (occurrence: None)
  Receive Date: 20110311
  Receipt Date: 20110301
  Transmission Date: 20110831
  Serious: Yes (Death)
  Sender: FDA-Public Use
  Company Number: US-CELGENEUS-163-21880-11030320

PATIENT
  Sex: Female

DRUGS (16)
  1. MEGESTROL ACETATE [Concomitant]
     Route: 065
  2. TRAZODONE HCL [Concomitant]
     Route: 065
  3. OXYCODONE [Concomitant]
     Route: 065
  4. CLONAZEPAM [Concomitant]
     Route: 065
  5. TUMS [Concomitant]
     Route: 065
  6. REVLIMID [Suspect]
     Indication: MULTIPLE MYELOMA
     Dosage: 10 MILLIGRAM
     Route: 048
     Dates: start: 20090901
  7. LEVETIRACETAM [Concomitant]
     Route: 065
  8. ASPIRIN [Concomitant]
     Route: 065
  9. DEXAMETHASONE [Concomitant]
     Route: 065
  10. MULTI-VITAMINS [Concomitant]
     Route: 065
  11. FUROSEMIDE [Concomitant]
     Route: 065
  12. METAXALONE [Concomitant]
     Route: 065
  13. CALTRATE [Concomitant]
     Route: 065
  14. GEODON [Concomitant]
     Route: 065
  15. KLOR-CON [Concomitant]
     Route: 065
  16. LISINOPRIL [Concomitant]
     Route: 065

REACTIONS (1)
  - DEATH [None]
